FAERS Safety Report 21789298 (Version 1)
Quarter: 2022Q4

REPORT INFORMATION
  Report Type: Spontaneous
  Country: US (occurrence: US)
  Receive Date: 20221228
  Receipt Date: 20221228
  Transmission Date: 20230112
  Serious: Yes (Hospitalization, Other)
  Sender: FDA-Public Use
  Company Number: US-BAYER-2022P031639

PATIENT
  Age: 15 Year
  Sex: Male

DRUGS (3)
  1. SORAFENIB [Suspect]
     Active Substance: SORAFENIB
     Indication: Desmoid tumour
     Dosage: 400 MG, QD DAILY
  2. PIPERACILLIN [Concomitant]
     Active Substance: PIPERACILLIN
  3. TAZOBACTAM [Concomitant]
     Active Substance: TAZOBACTAM
     Dosage: UNK

REACTIONS (15)
  - Tumour rupture [None]
  - Tumour necrosis [None]
  - Abdominal abscess [None]
  - Small intestinal obstruction [None]
  - Desmoid tumour [None]
  - Intestinal perforation [None]
  - Surgery [None]
  - Off label use [None]
  - Drug effective for unapproved indication [None]
  - Adenomatous polyposis coli [None]
  - Abdominal pain [None]
  - Chills [None]
  - Gastrointestinal disorder [None]
  - Abdominal tenderness [None]
  - Weight decreased [None]
